FAERS Safety Report 4759772-9 (Version None)
Quarter: 2005Q3

REPORT INFORMATION
  Report Type: 
  Country: None (occurrence: None)
  Receive Date: 20050829
  Receipt Date: 20050504
  Transmission Date: 20060218
  Serious: No
  Sender: FDA-Public Use
  Company Number: S05-USA-01690-01

PATIENT
  Age: 68 Year
  Sex: Male

DRUGS (8)
  1. CAMPRAL [Suspect]
     Indication: ALCOHOLISM
     Dosage: 666 MG TID PO
     Route: 048
     Dates: start: 20050314
  2. COUMADIN [Suspect]
     Indication: ANTICOAGULANT THERAPY
     Dosage: 10 MG QOD PO
     Route: 048
     Dates: start: 19940101, end: 20050331
  3. COUMADIN [Suspect]
     Indication: ANTICOAGULANT THERAPY
     Dosage: 15 MG TIW PO
     Route: 048
     Dates: start: 19940101, end: 20050331
  4. COUMADIN [Suspect]
     Indication: ANTICOAGULANT THERAPY
     Dosage: 10 MG TIW PO
     Route: 048
     Dates: start: 20050402
  5. COUMADIN [Suspect]
     Indication: ANTICOAGULANT THERAPY
     Dosage: 7.5 MG QOD PO
     Route: 048
     Dates: start: 20050402
  6. LIPITOR [Concomitant]
  7. ATENOLOL [Concomitant]
  8. ACTONEL [Concomitant]

REACTIONS (2)
  - DRUG INTERACTION [None]
  - INTERNATIONAL NORMALISED RATIO INCREASED [None]
